FAERS Safety Report 8282552-7 (Version None)
Quarter: 2012Q2

REPORT INFORMATION
  Report Type: 
  Country: None (occurrence: None)
  Receive Date: 20120410
  Receipt Date: 20120328
  Transmission Date: 20120825
  Serious: Yes (Hospitalization)
  Sender: FDA-Public Use
  Company Number: DSU-2012-02514

PATIENT
  Age: 76 Year
  Sex: Female
  Weight: 68.0396 kg

DRUGS (5)
  1. ATIVAN [Concomitant]
     Route: 048
  2. TYLENOL (PARACETAMOL) (PARACETAMOL) [Concomitant]
  3. ACETAMINOPHEN [Concomitant]
  4. BENICAR HCT [Suspect]
     Indication: HYPERTENSION
     Dosage: 20/12.5MG (QD), PER ORAL, 40/25MG (20/12.5MG BID(, PER ORAL, 20/12.5MG ((1/2) 40/25MG TABLET BID), P
     Route: 048
     Dates: start: 20110101
  5. BENICAR HCT [Suspect]
     Indication: HYPERTENSION
     Dosage: 20/12.5MG (QD), PER ORAL, 40/25MG (20/12.5MG BID(, PER ORAL, 20/12.5MG ((1/2) 40/25MG TABLET BID), P
     Route: 048
     Dates: start: 20120301

REACTIONS (14)
  - MUSCLE SPASMS [None]
  - FLUSHING [None]
  - FEELING HOT [None]
  - SOMNOLENCE [None]
  - JOINT SWELLING [None]
  - ASTHENIA [None]
  - WRONG TECHNIQUE IN DRUG USAGE PROCESS [None]
  - BLOOD PRESSURE INADEQUATELY CONTROLLED [None]
  - OEDEMA PERIPHERAL [None]
  - GAIT DISTURBANCE [None]
  - FATIGUE [None]
  - POLLAKIURIA [None]
  - FALL [None]
  - DIZZINESS [None]
